FAERS Safety Report 20953930 (Version 1)
Quarter: 2022Q2

REPORT INFORMATION
  Report Type: Spontaneous
  Country: FR (occurrence: FR)
  Receive Date: 20220614
  Receipt Date: 20220614
  Transmission Date: 20220721
  Serious: Yes (Hospitalization)
  Sender: FDA-Public Use
  Company Number: FR-AFSSAPS-AN20221412

PATIENT
  Age: 60 Year
  Sex: Male
  Weight: 50 kg

DRUGS (3)
  1. CLOZAPINE [Suspect]
     Active Substance: CLOZAPINE
     Indication: Product administration error
     Dosage: 250 MILLIGRAM, 1 TOTAL
     Route: 048
     Dates: start: 20220510, end: 20220510
  2. LAMOTRIGINE [Suspect]
     Active Substance: LAMOTRIGINE
     Indication: Product administration error
     Dosage: 200 MILLIGRAM, 1 TOTAL
     Route: 048
     Dates: start: 20220510, end: 20220510
  3. TERALITHE [Suspect]
     Active Substance: LITHIUM CARBONATE
     Indication: Product administration error
     Dosage: UNK, 1 TOTAL
     Route: 048
     Dates: start: 20220510, end: 20220510

REACTIONS (4)
  - Vomiting [Recovered/Resolved]
  - Somnolence [Recovered/Resolved]
  - Feeling hot [Recovered/Resolved]
  - Wrong patient [Recovered/Resolved]

NARRATIVE: CASE EVENT DATE: 20220510
